FAERS Safety Report 10561872 (Version 1)
Quarter: 2014Q4

REPORT INFORMATION
  Report Type: Spontaneous
  Country: US (occurrence: US)
  Receive Date: 20141104
  Receipt Date: 20141104
  Transmission Date: 20150529
  Serious: Yes (Hospitalization)
  Sender: FDA-Public Use
  Company Number: US-AMGEN-USASP2014084221

PATIENT
  Age: 19 Year
  Sex: Female

DRUGS (1)
  1. EPOGEN [Suspect]
     Active Substance: ERYTHROPOIETIN
     Indication: ANAEMIA
     Dosage: 10,000 UNITS, ONCE WEEKLY
     Route: 058

REACTIONS (5)
  - Asthenia [Unknown]
  - Malnutrition [Unknown]
  - Dyspnoea [Unknown]
  - Anaemia [Unknown]
  - Cachexia [Unknown]

NARRATIVE: CASE EVENT DATE: 201410
